FAERS Safety Report 4439794-8 (Version None)
Quarter: 2004Q3

REPORT INFORMATION
  Report Type: 
  Country: None (occurrence: None)
  Receive Date: 20040830
  Receipt Date: 20040528
  Transmission Date: 20050211
  Serious: Yes (Hospitalization)
  Sender: FDA-Public Use
  Company Number: 2004-UK-00511UK

PATIENT
  Sex: Male

DRUGS (10)
  1. SPIRIVA [Suspect]
     Indication: CHRONIC OBSTRUCTIVE AIRWAYS DISEASE
     Dosage: 18 MCG (18 MCG, ONCE DAILY) IH
     Route: 055
     Dates: start: 20040428, end: 20040501
  2. SIMVASTATIN (NR) [Concomitant]
  3. SYMBICORT (SYMBICORT TURBUHALER ^DRACO^) (NR) [Concomitant]
  4. FRUSEMIDE (FUROSEMIDE) (NR) [Concomitant]
  5. CANDESARTAN (CANDESARTAN) (NR) [Concomitant]
  6. OMEPRAZOLE [Concomitant]
  7. ASPIRIN [Concomitant]
  8. CO-CODAMOL (PANADEINE CO) (NR) [Concomitant]
  9. RISEDRONATE SODIUM (RISEDRONATE SODIUM) (NR) [Concomitant]
  10. BRICANYL (TERBUTALINE SULFATE) (NR) [Concomitant]

REACTIONS (5)
  - INFLAMMATION [None]
  - LUNG DISORDER [None]
  - LUNG INFILTRATION [None]
  - PHARYNGOLARYNGEAL PAIN [None]
  - WHITE BLOOD CELL COUNT INCREASED [None]
